FAERS Safety Report 10011044 (Version 1)
Quarter: 2014Q1

REPORT INFORMATION
  Report Type: Spontaneous
  Country: US (occurrence: US)
  Receive Date: 20140314
  Receipt Date: 20140314
  Transmission Date: 20141002
  Serious: Yes (Hospitalization)
  Sender: FDA-Public Use
  Company Number: US-BAYER-2014-037263

PATIENT
  Age: 40 Year
  Sex: Female
  Weight: 68.03 kg

DRUGS (10)
  1. YAZ [Suspect]
  2. YASMIN [Suspect]
     Indication: PREMENSTRUAL SYNDROME
  3. CODEINE [Concomitant]
     Indication: COUGH
  4. CODEINE [Concomitant]
     Indication: PAIN
  5. ADVIL [Concomitant]
     Indication: PLEURITIC PAIN
  6. TYLENOL [PARACETAMOL] [Concomitant]
     Indication: PAIN
  7. TYLENOL [PARACETAMOL] [Concomitant]
     Indication: COUGH
  8. TYLENOL #3 [Concomitant]
     Indication: PAIN
  9. MORPHINE [Concomitant]
  10. IBUPROFEN [Concomitant]

REACTIONS (1)
  - Pulmonary embolism [Recovering/Resolving]
